FAERS Safety Report 4562964-5 (Version None)
Quarter: 2005Q1

REPORT INFORMATION
  Report Type: 
  Country: None (occurrence: None)
  Receive Date: 20050121
  Receipt Date: 20050112
  Transmission Date: 20050727
  Serious: Yes (Hospitalization)
  Sender: FDA-Public Use
  Company Number: DEU-2002-0000049

PATIENT
  Age: 73 Year
  Sex: Female
  Weight: 86 kg

DRUGS (8)
  1. OXYCODONE HCL [Suspect]
     Indication: BACK PAIN
     Dosage: BID, ORAL
     Route: 048
  2. PHENPROCOUMON (PHENPROCOUMON) [Suspect]
  3. DELIX PLUS (HYDROCHLOROTHIAZIDE, RAMIPRIL) [Concomitant]
  4. MOLSICOR (MOLSIDOMINE) CR TABLET [Concomitant]
  5. SOTAHEXAL (SOTALOL HYDROCHLORIDE) TABLET [Concomitant]
  6. FUROBETA (FUROSEMIDE) [Concomitant]
  7. ISOKET RETARD (ISOSORBIDE DINITRATE) [Concomitant]
  8. SODIUM PICOSULFATE (SODIUM PICOSULFATE) [Concomitant]

REACTIONS (4)
  - DRUG INTERACTION [None]
  - INTERNATIONAL NORMALISED RATIO INCREASED [None]
  - OVERDOSE [None]
  - PROTHROMBIN TIME PROLONGED [None]
